FAERS Safety Report 12446721 (Version 2)
Quarter: 2019Q3

REPORT INFORMATION
  Report Type: Spontaneous
  Country: US (occurrence: US)
  Receive Date: 20160608
  Receipt Date: 20190912
  Transmission Date: 20191004
  Serious: No
  Sender: FDA-Public Use
  Company Number: US-PFIZER INC-2016025244

PATIENT
  Age: 55 Year
  Sex: Female

DRUGS (1)
  1. SUTENT [Suspect]
     Active Substance: SUNITINIB MALATE
     Indication: CARCINOID TUMOUR
     Dosage: 25 MG, CYCLIC (1 CAPSULE EVERY DAY TAKE WHOLE WITH WATER DAILY FOR FOUR WEEKS, TWO WEEKS OFF)
     Route: 048

REACTIONS (3)
  - Amnesia [Unknown]
  - Off label use [Unknown]
  - Product use in unapproved indication [Unknown]
